FAERS Safety Report 22754573 (Version 3)
Quarter: 2023Q4

REPORT INFORMATION
  Report Type: Spontaneous
  Country: US (occurrence: US)
  Receive Date: 20230727
  Receipt Date: 20231115
  Transmission Date: 20240110
  Serious: No
  Sender: FDA-Public Use
  Company Number: US-BRISTOL-MYERS SQUIBB COMPANY-2023-105517

PATIENT
  Age: 68 Year
  Sex: Male
  Weight: 73.48 kg

DRUGS (2)
  1. REVLIMID [Suspect]
     Active Substance: LENALIDOMIDE
     Indication: Plasma cell myeloma
     Dosage: 3WKSON,1WKOFF
     Route: 048
  2. REVLIMID [Suspect]
     Active Substance: LENALIDOMIDE
     Dosage: FREQ: 3 WKS ON, 1 WK OFF
     Route: 048

REACTIONS (10)
  - Eye infection [Unknown]
  - Hypotension [Unknown]
  - Balance disorder [Unknown]
  - Peripheral swelling [Unknown]
  - Dyspnoea [Unknown]
  - Hyperhidrosis [Unknown]
  - Dysphonia [Unknown]
  - Eye discharge [Unknown]
  - Rhinorrhoea [Unknown]
  - Night sweats [Unknown]
